FAERS Safety Report 16321952 (Version 3)
Quarter: 2019Q4

REPORT INFORMATION
  Report Type: Report from Study
  Country: US (occurrence: US)
  Receive Date: 20190516
  Receipt Date: 20191204
  Transmission Date: 20200122
  Serious: Yes (Hospitalization, Other)
  Sender: FDA-Public Use
  Company Number: US-MYLANLABS-2018M1093347

PATIENT
  Age: 25 Year
  Sex: Male
  Weight: 55.5 kg

DRUGS (48)
  1. TOBI [Suspect]
     Active Substance: TOBRAMYCIN
     Dosage: 300 OT, BID
     Route: 055
     Dates: start: 20171012, end: 20171116
  2. CAYSTON [Suspect]
     Active Substance: AZTREONAM
     Dosage: 75 OT, TID
     Route: 065
     Dates: start: 20170707, end: 20170805
  3. PULMOZYME [Concomitant]
     Active Substance: DORNASE ALFA
     Indication: CYSTIC FIBROSIS
     Dosage: 2.5 ML, QD
     Route: 055
     Dates: start: 20160406
  4. TOBI [Suspect]
     Active Substance: TOBRAMYCIN
     Dosage: 300 OT, BID
     Route: 055
     Dates: start: 20190316, end: 20190322
  5. CAYSTON [Suspect]
     Active Substance: AZTREONAM
     Indication: PRODUCT USED FOR UNKNOWN INDICATION
     Dosage: 75 MG, TID (28 DAYS ON AND OFF CYCLE)
     Route: 055
     Dates: start: 2012
  6. CAYSTON [Suspect]
     Active Substance: AZTREONAM
     Dosage: 75 OT, TID
     Route: 065
     Dates: start: 20190128, end: 20190308
  7. MONTELUKAST [Concomitant]
     Active Substance: MONTELUKAST SODIUM
     Indication: PRODUCT USED FOR UNKNOWN INDICATION
     Dosage: 1 DF, QD AT BEDTIME
     Route: 048
     Dates: start: 20160519
  8. NOVOLOG [Concomitant]
     Active Substance: INSULIN ASPART
     Indication: CYSTIC FIBROSIS RELATED DIABETES
     Dosage: UNK (SLIDING SCALES)
     Dates: start: 2011
  9. TOBI [Suspect]
     Active Substance: TOBRAMYCIN
     Indication: CYSTIC FIBROSIS
     Dosage: 300 MILLIGRAM, BID (28 DAYS ON AND OFF))
     Route: 055
     Dates: start: 2012
  10. PATANOL [Concomitant]
     Active Substance: OLOPATADINE HYDROCHLORIDE
     Indication: PRODUCT USED FOR UNKNOWN INDICATION
     Dosage: 0.1 %, GTT QD PRN
     Route: 065
  11. TOBI PODHALER [Suspect]
     Active Substance: TOBRAMYCIN
     Indication: CYSTIC FIBROSIS
  12. TOBI [Suspect]
     Active Substance: TOBRAMYCIN
     Dosage: 300 OT, BID
     Route: 055
     Dates: start: 20160802, end: 20160825
  13. TOBI [Suspect]
     Active Substance: TOBRAMYCIN
     Dosage: 300 OT, BID
     Route: 055
     Dates: start: 20160925, end: 20161024
  14. TOBI [Suspect]
     Active Substance: TOBRAMYCIN
     Dosage: 300 OT, BID
     Route: 055
     Dates: start: 20170322, end: 20170429
  15. TOBI [Suspect]
     Active Substance: TOBRAMYCIN
     Dosage: 300 OT, BID
     Route: 055
     Dates: start: 20170806, end: 20170914
  16. TOBI [Suspect]
     Active Substance: TOBRAMYCIN
     Dosage: 300 OT, BID
     Route: 055
     Dates: start: 20190225, end: 20190315
  17. CAYSTON [Suspect]
     Active Substance: AZTREONAM
     Dosage: 75 OT, TID
     Route: 065
     Dates: start: 20160521, end: 20160714
  18. CAYSTON [Suspect]
     Active Substance: AZTREONAM
     Dosage: 75 OT, TID
     Route: 065
     Dates: start: 20161025, end: 20161206
  19. CAYSTON [Suspect]
     Active Substance: AZTREONAM
     Dosage: 75 OT, TID
     Route: 065
     Dates: start: 20170216, end: 20170321
  20. CAYSTON [Suspect]
     Active Substance: AZTREONAM
     Dosage: 75 OT, TID
     Route: 065
     Dates: start: 20170914, end: 20171012
  21. CAYSTON [Suspect]
     Active Substance: AZTREONAM
     Dosage: 75 OT, TID
     Route: 065
     Dates: start: 20171116
  22. HYPERTONIC SALINE SOLUTION [Concomitant]
     Active Substance: SODIUM CHLORIDE
     Indication: PRODUCT USED FOR UNKNOWN INDICATION
     Dosage: 10 %, BID
     Route: 055
  23. VITAMIN C [Concomitant]
     Active Substance: ASCORBIC ACID
     Indication: PRODUCT USED FOR UNKNOWN INDICATION
     Dosage: 500 MG, QD
     Route: 048
  24. CALCIUM +VIT D [Concomitant]
     Active Substance: CALCIUM\VITAMIN D
     Indication: PRODUCT USED FOR UNKNOWN INDICATION
     Dosage: 600 MG/200 UNITS, QD
     Route: 048
  25. LEXAPRO [Concomitant]
     Active Substance: ESCITALOPRAM OXALATE
     Indication: DEPRESSION
     Dosage: UNK
     Route: 065
     Dates: start: 20180513
  26. CREON [Concomitant]
     Active Substance: PANCRELIPASE AMYLASE\PANCRELIPASE LIPASE\PANCRELIPASE PROTEASE
     Dosage: 7 DOSAGE FORM WITH MEALS
     Route: 048
     Dates: start: 20111116
  27. CAYSTON [Suspect]
     Active Substance: AZTREONAM
     Dosage: 75 OT, TID
     Route: 065
     Dates: start: 20180201, end: 20180308
  28. FLONASE                            /00908302/ [Concomitant]
     Active Substance: MOMETASONE FUROATE
     Indication: CHRONIC SINUSITIS
     Dosage: 2 SPRAYS INTO BOTH NOSTRILS, QD (PRN)
     Route: 045
     Dates: start: 20160414
  29. ZOLOFT [Concomitant]
     Active Substance: SERTRALINE HYDROCHLORIDE
     Indication: DEPRESSION
     Dosage: UNK
     Route: 065
     Dates: start: 20170621, end: 20180513
  30. ALBUTEROL                         /00139501/ [Concomitant]
     Active Substance: ALBUTEROL
     Indication: RESPIRATORY TRACT CONGESTION
     Dosage: 25 MILLIGRAM, QD
     Dates: start: 2001
  31. CAYSTON [Suspect]
     Active Substance: AZTREONAM
     Dosage: 75 OT, TID
     Route: 065
     Dates: start: 20170430, end: 20170620
  32. SODIUM CHLORIDE. [Concomitant]
     Active Substance: SODIUM CHLORIDE
     Indication: PRODUCT USED FOR UNKNOWN INDICATION
     Dosage: 4 ML, BID
     Route: 055
  33. CREON [Concomitant]
     Active Substance: PANCRELIPASE AMYLASE\PANCRELIPASE LIPASE\PANCRELIPASE PROTEASE
     Indication: PANCREATIC FAILURE
     Dosage: UNK (24 UNSPECIFIED UNITS)
     Route: 065
     Dates: start: 19910101, end: 20180117
  34. TOBI [Suspect]
     Active Substance: TOBRAMYCIN
     Dosage: 300 OT, BID
     Route: 055
     Dates: start: 20160715, end: 20160720
  35. TOBI [Suspect]
     Active Substance: TOBRAMYCIN
     Dosage: 300 OT, BID
     Route: 055
     Dates: start: 20170111, end: 20170215
  36. PULMOZYME [Concomitant]
     Active Substance: DORNASE ALFA
     Dosage: 25 MILLIGRAM, QD
     Dates: start: 2001
  37. AZITHROMYCIN ANHYDROUS. [Concomitant]
     Active Substance: AZITHROMYCIN ANHYDROUS
     Indication: PRODUCT USED FOR UNKNOWN INDICATION
     Dosage: 1 DF, 3 TIMES A WEEK
     Route: 065
     Dates: start: 20160520
  38. ADVAIR HFA [Concomitant]
     Active Substance: FLUTICASONE PROPIONATE\SALMETEROL XINAFOATE
     Indication: ASTHMA
     Dosage: 230/21 HFA, BID DAILY
     Dates: start: 2012
  39. URSODIOL. [Concomitant]
     Active Substance: URSODIOL
     Indication: PRODUCT USED FOR UNKNOWN INDICATION
     Dosage: 1 DF, BID
     Route: 048
     Dates: start: 20160126
  40. VITAMIN D3 [Concomitant]
     Active Substance: CHOLECALCIFEROL
     Indication: PRODUCT USED FOR UNKNOWN INDICATION
     Dosage: 50000 U, QD
     Route: 048
     Dates: start: 20160609
  41. CETIRIZINE [Concomitant]
     Active Substance: CETIRIZINE HYDROCHLORIDE
     Indication: PRODUCT USED FOR UNKNOWN INDICATION
     Dosage: 10 MG, QD
     Route: 048
  42. AZTREONAM LYSINE [Concomitant]
     Active Substance: AZTREONAM LYSINE
     Indication: PRODUCT USED FOR UNKNOWN INDICATION
     Dosage: 75 MG, TID
     Route: 055
     Dates: start: 20151028
  43. OLOPATADINE. [Concomitant]
     Active Substance: OLOPATADINE
     Indication: PRODUCT USED FOR UNKNOWN INDICATION
     Dosage: 1 DRP, QD IN BOTH EYES
     Route: 065
  44. TOBI PODHALER [Suspect]
     Active Substance: TOBRAMYCIN
     Indication: PSEUDOMONAS INFECTION
  45. TOBI [Suspect]
     Active Substance: TOBRAMYCIN
     Indication: PSEUDOMONAS INFECTION
     Dosage: 300 OT, BID
     Route: 055
     Dates: start: 20160408, end: 20160520
  46. TOBI [Suspect]
     Active Substance: TOBRAMYCIN
     Dosage: 300 OT, BID
     Route: 055
     Dates: start: 20161207, end: 20161227
  47. CAYSTON [Suspect]
     Active Substance: AZTREONAM
     Dosage: 75 OT, TID
     Route: 065
     Dates: start: 20160310, end: 20160407
  48. CAYSTON [Suspect]
     Active Substance: AZTREONAM
     Dosage: 75 OT, TID
     Route: 065
     Dates: start: 20160826, end: 20160924

REACTIONS (17)
  - Pancreatic failure [Unknown]
  - Blood glucose increased [Unknown]
  - Chronic sinusitis [Unknown]
  - Infective pulmonary exacerbation of cystic fibrosis [Recovered/Resolved]
  - Pseudomonas infection [Unknown]
  - Sputum increased [Unknown]
  - Infective exacerbation of bronchiectasis [Unknown]
  - Vitamin D deficiency [Unknown]
  - Cough [Unknown]
  - Pulmonary trichosporonosis [Unknown]
  - Haemoptysis [Recovered/Resolved]
  - Cystic fibrosis hepatic disease [Unknown]
  - Asthma [Unknown]
  - Dyspnoea [Unknown]
  - Chest pain [Unknown]
  - Glycosylated haemoglobin increased [Unknown]
  - Cystic fibrosis related diabetes [Unknown]

NARRATIVE: CASE EVENT DATE: 20160405
